FAERS Safety Report 4340264-6 (Version None)
Quarter: 2004Q2

REPORT INFORMATION
  Report Type: 
  Country: None (occurrence: None)
  Receive Date: 20040412
  Receipt Date: 20040326
  Transmission Date: 20050107
  Serious: Yes (Death)
  Sender: FDA-Public Use
  Company Number: D01200400168

PATIENT
  Age: 60 Year
  Sex: Female
  Weight: 40 kg

DRUGS (10)
  1. CISPLATIN [Suspect]
     Indication: SMALL CELL LUNG CANCER EXTENSIVE STAGE
     Dosage: 80 MG/M2 CONT - INTRAVENOUS NOS
     Route: 042
     Dates: start: 20040106, end: 20040106
  2. ETOPOSIDE [Suspect]
     Indication: SMALL CELL LUNG CANCER EXTENSIVE STAGE
     Dosage: 120 MG/M2 GIVEN ON DAYS 1, 2 AND 3, IN A 30-MINUTE INFUSION - INTRAVENOUS NOS
     Route: 042
     Dates: start: 20040106, end: 20040108
  3. ONDANSETRON HCL [Concomitant]
  4. INFUSION THERAPY [Concomitant]
  5. LABETALOL HYDROCHLORIDE [Concomitant]
  6. ALPRAZOLAM [Concomitant]
  7. CITALOPRAM HYDROBROMIDE [Concomitant]
  8. SALMETEROL XINAFOATE [Concomitant]
  9. ALBUTEROL SULFATE [Concomitant]
  10. BUDESONIDE [Concomitant]

REACTIONS (1)
  - CARDIOPULMONARY FAILURE [None]
